FAERS Safety Report 11408642 (Version 1)
Quarter: 2015Q3

REPORT INFORMATION
  Report Type: Spontaneous
  Country: NG (occurrence: NG)
  Receive Date: 20150822
  Receipt Date: 20150822
  Transmission Date: 20151125
  Serious: Yes (Hospitalization)
  Sender: FDA-Public Use
  Company Number: PHHY2015NG100110

PATIENT
  Age: 62 Year
  Sex: Male

DRUGS (2)
  1. DONEPEZIL. [Suspect]
     Active Substance: DONEPEZIL
     Indication: PARKINSON^S DISEASE
     Route: 065
  2. DONEPEZIL. [Suspect]
     Active Substance: DONEPEZIL
     Indication: DEMENTIA

REACTIONS (4)
  - Delusion [Recovering/Resolving]
  - Depressed mood [Recovering/Resolving]
  - Jealous delusion [Recovering/Resolving]
  - Aggression [Recovering/Resolving]
